FAERS Safety Report 5452189-3 (Version None)
Quarter: 2007Q3

REPORT INFORMATION
  Report Type: 
  Country: None (occurrence: None)
  Receive Date: 20070912
  Receipt Date: 20070912
  Transmission Date: 20080115
  Serious: No
  Sender: FDA-Public Use
  Company Number: None

PATIENT
  Sex: Male
  Weight: 83.0083 kg

DRUGS (1)
  1. BUPROPION XL (GENERIC FOR WELLBUTRIN) [Suspect]
     Indication: DEPRESSION
     Dosage: 300MG ONCE QD PO
     Route: 048
     Dates: start: 20070823

REACTIONS (4)
  - DRUG EFFECT DECREASED [None]
  - IRRITABILITY [None]
  - RESTLESSNESS [None]
  - THERAPEUTIC RESPONSE UNEXPECTED WITH DRUG SUBSTITUTION [None]
